FAERS Safety Report 6917171-5 (Version None)
Quarter: 2010Q3

REPORT INFORMATION
  Report Type: 
  Country: None (occurrence: None)
  Receive Date: 20100721
  Receipt Date: 20100412
  Transmission Date: 20110219
  Serious: Yes (Hospitalization)
  Sender: FDA-Public Use
  Company Number: 2010AL000080

PATIENT
  Sex: Female

DRUGS (4)
  1. FOLOTYN [Suspect]
     Indication: MYCOSIS FUNGOIDES
     Dosage: 30 MG/M**2;QW;IV
     Route: 042
     Dates: start: 20091015, end: 20100224
  2. FOLIC ACID [Concomitant]
  3. VITAMIN B-12 [Concomitant]
  4. PREV MEDS =UNKNOWN [Concomitant]

REACTIONS (3)
  - FUNGAEMIA [None]
  - HERPES ZOSTER [None]
  - OROPHARYNGEAL PAIN [None]
